FAERS Safety Report 23166409 (Version 3)
Quarter: 2024Q3

REPORT INFORMATION
  Report Type: Spontaneous
  Country: US (occurrence: US)
  Receive Date: 20231109
  Receipt Date: 20240904
  Transmission Date: 20241016
  Serious: No
  Sender: Haleon PLC
  Company Number: US-GLAXOSMITHKLINE-USCH2023053169

PATIENT
  Age: 69 Year
  Sex: Female

DRUGS (1)
  1. ALLI [Suspect]
     Active Substance: ORLISTAT
     Indication: Weight control
     Dosage: EXPIRY DATE: 2024-08
     Dates: start: 20231005, end: 20231020

REACTIONS (4)
  - Illness [Recovered/Resolved]
  - Abdominal pain upper [Recovered/Resolved]
  - Back pain [Recovered/Resolved]
  - Flatulence [Recovered/Resolved]

NARRATIVE: CASE EVENT DATE: 20231005
